FAERS Safety Report 7214386-6 (Version None)
Quarter: 2011Q1

REPORT INFORMATION
  Report Type: 
  Country: None (occurrence: None)
  Receive Date: 20110107
  Receipt Date: 20101229
  Transmission Date: 20110831
  Serious: Yes (Hospitalization)
  Sender: FDA-Public Use
  Company Number: PHHY2010AR89171

PATIENT
  Sex: Male

DRUGS (2)
  1. RITALIN [Suspect]
     Indication: PSYCHOMOTOR HYPERACTIVITY
     Dosage: 3 TABLETS DAILY
     Route: 048
     Dates: end: 20101228
  2. RITALIN [Suspect]
     Indication: AGGRESSION

REACTIONS (4)
  - AGGRESSION [None]
  - NERVOUSNESS [None]
  - SEDATION [None]
  - CONVULSION [None]
